FAERS Safety Report 15570590 (Version 2)
Quarter: 2018Q4

REPORT INFORMATION
  Report Type: Spontaneous
  Country: US (occurrence: US)
  Receive Date: 20181031
  Receipt Date: 20181206
  Transmission Date: 20190205
  Serious: Yes (Other)
  Sender: FDA-Public Use
  Company Number: US-LPDUSPRD-20181504

PATIENT
  Age: 51 Year
  Sex: Female

DRUGS (1)
  1. INJECTAFER [Suspect]
     Active Substance: FERRIC CARBOXYMALTOSE
     Dosage: 750 MG, 2 TIMES 7 DAYS APART
     Route: 040
     Dates: start: 20180601, end: 20180601

REACTIONS (3)
  - Injection site extravasation [Unknown]
  - Skin discolouration [Unknown]
  - Injection site discolouration [Unknown]

NARRATIVE: CASE EVENT DATE: 20180601
